FAERS Safety Report 5731989-6 (Version None)
Quarter: 2008Q2

REPORT INFORMATION
  Report Type: 
  Country: None (occurrence: None)
  Receive Date: 20080506
  Receipt Date: 20080424
  Transmission Date: 20081010
  Serious: Yes (Hospitalization)
  Sender: FDA-Public Use
  Company Number: 2008BI009049

PATIENT
  Age: 56 Year
  Sex: Female
  Weight: 82 kg

DRUGS (5)
  1. AVONEX [Suspect]
     Indication: MULTIPLE SCLEROSIS
     Dosage: 10 UG; QW; IM
     Route: 030
     Dates: start: 20070309
  2. GABAPENTIN [Concomitant]
  3. PETADOLEX [Concomitant]
  4. NETTLE DRAGEE [Concomitant]
  5. RED CLOVER [Concomitant]

REACTIONS (5)
  - ASTHMA [None]
  - C-REACTIVE PROTEIN INCREASED [None]
  - CHEST PAIN [None]
  - NERVE COMPRESSION [None]
  - REFUSAL OF TREATMENT BY PATIENT [None]
